FAERS Safety Report 23369665 (Version 1)
Quarter: 2024Q1

REPORT INFORMATION
  Report Type: Spontaneous
  Country: US (occurrence: None)
  Receive Date: 20240104
  Receipt Date: 20240104
  Transmission Date: 20240409
  Serious: Yes (Hospitalization)
  Sender: FDA-Public Use
  Company Number: None

PATIENT
  Age: 75 Year
  Sex: Female
  Weight: 68 kg

DRUGS (2)
  1. DARATUMUMAB [Suspect]
     Active Substance: DARATUMUMAB
     Indication: Plasma cell myeloma
     Dosage: FREQUENCY : MONTHLY;?
     Route: 058
     Dates: start: 20210305, end: 20231110
  2. REVLIMID [Suspect]
     Active Substance: LENALIDOMIDE
     Indication: Plasma cell myeloma
     Dosage: OTHER FREQUENCY : 1-21 DAY CYCLE;?
     Route: 048
     Dates: start: 20230305, end: 20231110

REACTIONS (8)
  - Ascites [None]
  - Metastases to peritoneum [None]
  - Pleural effusion [None]
  - Uterine leiomyoma [None]
  - Ovarian enlargement [None]
  - Lymphadenopathy [None]
  - Metastatic neoplasm [None]
  - Neoplasm malignant [None]
